FAERS Safety Report 25424612 (Version 1)
Quarter: 2025Q2

REPORT INFORMATION
  Report Type: Spontaneous
  Country: US (occurrence: US)
  Receive Date: 20250611
  Receipt Date: 20250611
  Transmission Date: 20250716
  Serious: No
  Sender: SANOFI AVENTIS
  Company Number: US-SA-2025SA164987

PATIENT
  Age: 45 Year
  Sex: Female

DRUGS (10)
  1. DUPIXENT [Suspect]
     Active Substance: DUPILUMAB
     Indication: Asthma
     Dosage: 300 MG, QOW
     Route: 058
     Dates: start: 20201013
  2. BREO ELLIPTA [Concomitant]
     Active Substance: FLUTICASONE FUROATE\VILANTEROL TRIFENATATE
  3. TEZSPIRE [Concomitant]
     Active Substance: TEZEPELUMAB-EKKO
  4. QVAR [Concomitant]
     Active Substance: BECLOMETHASONE DIPROPIONATE
  5. COMBIVENT [Concomitant]
     Active Substance: ALBUTEROL SULFATE\IPRATROPIUM BROMIDE
  6. DOXYCYCLINE [Concomitant]
     Active Substance: DOXYCYCLINE
  7. NUCALA [Concomitant]
     Active Substance: MEPOLIZUMAB
  8. MELOXICAM [Concomitant]
     Active Substance: MELOXICAM
  9. PREDNISONE [Concomitant]
     Active Substance: PREDNISONE
  10. ZOLOFT [Concomitant]
     Active Substance: SERTRALINE HYDROCHLORIDE

REACTIONS (3)
  - Respiratory tract infection [Unknown]
  - Dermatitis atopic [Unknown]
  - Drug ineffective [Unknown]
